FAERS Safety Report 6665030-8 (Version None)
Quarter: 2010Q2

REPORT INFORMATION
  Report Type: 
  Country: None (occurrence: None)
  Receive Date: 20100402
  Receipt Date: 20100323
  Transmission Date: 20101027
  Serious: Yes (Hospitalization)
  Sender: FDA-Public Use
  Company Number: US-BIOGENIDEC-2010BI009700

PATIENT
  Age: 32 Year
  Sex: Female
  Weight: 77 kg

DRUGS (5)
  1. AVONEX [Suspect]
     Indication: MULTIPLE SCLEROSIS
     Route: 030
     Dates: start: 20100321, end: 20100321
  2. AVONEX [Suspect]
     Route: 030
     Dates: start: 19990101, end: 19990101
  3. AVONEX [Suspect]
     Route: 030
     Dates: start: 20010101, end: 20020101
  4. AVONEX [Suspect]
     Route: 030
     Dates: start: 20100308, end: 20100308
  5. AVONEX [Suspect]
     Route: 030
     Dates: start: 20100314, end: 20100314

REACTIONS (7)
  - COUGH [None]
  - DYSPNOEA [None]
  - FEELING OF BODY TEMPERATURE CHANGE [None]
  - INFLUENZA LIKE ILLNESS [None]
  - MULTIPLE SCLEROSIS RELAPSE [None]
  - RHINORRHOEA [None]
  - WHEEZING [None]
